FAERS Safety Report 5404162-9 (Version None)
Quarter: 2007Q3

REPORT INFORMATION
  Report Type: 
  Country: None (occurrence: None)
  Receive Date: 20070731
  Receipt Date: 20070717
  Transmission Date: 20080115
  Serious: Yes (Other)
  Sender: FDA-Public Use
  Company Number: 235945K07USA

PATIENT
  Age: 46 Year
  Sex: Female
  Weight: 79.3795 kg

DRUGS (4)
  1. REBIF [Suspect]
     Indication: MULTIPLE SCLEROSIS
     Dosage: 44 MCG, 3 IN 1 WEEKS, SUBCUTANEOUS
     Route: 058
     Dates: start: 20061107
  2. TOPAMAX [Concomitant]
  3. XALATAN EYE DROPS (LATANOPROST) [Concomitant]
  4. NITROFURANTOIN [Concomitant]

REACTIONS (1)
  - DIABETES MELLITUS [None]
